FAERS Safety Report 9437689 (Version 1)
Quarter: 2013Q3

REPORT INFORMATION
  Report Type: Report from Study
  Country: US (occurrence: US)
  Receive Date: 20130802
  Receipt Date: 20130802
  Transmission Date: 20140515
  Serious: Yes (Death)
  Sender: FDA-Public Use
  Company Number: US-ROCHE-1125451

PATIENT
  Age: 60 Year
  Sex: Male
  Weight: 80.81 kg

DRUGS (2)
  1. ZELBORAF [Suspect]
     Indication: METASTATIC MALIGNANT MELANOMA
     Route: 048
     Dates: end: 20130721
  2. ZELBORAF [Suspect]
     Route: 048

REACTIONS (5)
  - Sudden death [Fatal]
  - Muscle spasms [Not Recovered/Not Resolved]
  - Restless legs syndrome [Not Recovered/Not Resolved]
  - Skin papilloma [Not Recovered/Not Resolved]
  - Dry skin [Unknown]
